FAERS Safety Report 5449936-3 (Version None)
Quarter: 2007Q3

REPORT INFORMATION
  Report Type: 
  Country: None (occurrence: None)
  Receive Date: 20070912
  Receipt Date: 20070911
  Transmission Date: 20080115
  Serious: Yes (Other)
  Sender: FDA-Public Use
  Company Number: GB-BRISTOL-MYERS SQUIBB COMPANY-13904040

PATIENT

DRUGS (1)
  1. IFOSFAMIDE [Suspect]
     Indication: SARCOMA

REACTIONS (2)
  - OSTEOMALACIA [None]
  - RENAL TUBULAR DISORDER [None]
